FAERS Safety Report 4553632-4 (Version None)
Quarter: 2004Q4

REPORT INFORMATION
  Report Type: 
  Country: None (occurrence: None)
  Receive Date: 20041227
  Receipt Date: 20041019
  Transmission Date: 20050328
  Serious: No
  Sender: FDA-Public Use
  Company Number: 04P-163-0277887-00

PATIENT
  Age: 72 Year
  Sex: Female
  Weight: 77.1115 kg

DRUGS (9)
  1. HUMIRA [Suspect]
     Indication: RHEUMATOID ARTHRITIS
     Dosage: 40 MG, 1 IN 2 WK, SUBCUTANEOUS
     Route: 058
     Dates: start: 20040101, end: 20040908
  2. HUMIRA [Suspect]
     Indication: RHEUMATOID ARTHRITIS
     Dosage: 40 MG, 1 IN 2 WK, SUBCUTANEOUS
     Route: 058
     Dates: start: 20040909
  3. AXOTAL [Concomitant]
  4. METHOTREXATE SODIUM [Concomitant]
  5. ALENDRONATE SODIUM [Concomitant]
  6. CALCIUM CITRATE [Concomitant]
  7. NADOLOL [Concomitant]
  8. HYDROCHLOROTHIAZIDE [Concomitant]
  9. IMITREX [Concomitant]

REACTIONS (6)
  - ARTHRITIS [None]
  - COUGH [None]
  - EPISTAXIS [None]
  - INCREASED UPPER AIRWAY SECRETION [None]
  - INJECTION SITE BURNING [None]
  - RED BLOOD CELL SEDIMENTATION RATE INCREASED [None]
